FAERS Safety Report 10837727 (Version 3)
Quarter: 2015Q3

REPORT INFORMATION
  Report Type: Spontaneous
  Country: US (occurrence: US)
  Receive Date: 20150219
  Receipt Date: 20150921
  Transmission Date: 20151125
  Serious: No
  Sender: FDA-Public Use
  Company Number: US-GLAXOSMITHKLINE-US2015GSK007736

PATIENT
  Age: 45 Year
  Sex: Male

DRUGS (1)
  1. PROMACTA [Suspect]
     Active Substance: ELTROMBOPAG OLAMINE
     Indication: APLASTIC ANAEMIA
     Dosage: 150 MG, QD
     Route: 048
     Dates: start: 20141216

REACTIONS (4)
  - Bone pain [Recovered/Resolved]
  - Swelling face [Recovered/Resolved]
  - Vision blurred [Unknown]
  - Nausea [Recovered/Resolved]
